FAERS Safety Report 23064638 (Version 1)
Quarter: 2023Q4

REPORT INFORMATION
  Report Type: Spontaneous
  Country: ES (occurrence: ES)
  Receive Date: 20231013
  Receipt Date: 20231013
  Transmission Date: 20240110
  Serious: Yes (Other)
  Sender: FDA-Public Use
  Company Number: ES-SUN PHARMACEUTICAL INDUSTRIES LTD-2023RR-412466

PATIENT
  Age: 47 Year
  Sex: Male

DRUGS (5)
  1. ABIRATERONE [Suspect]
     Active Substance: ABIRATERONE
     Indication: Prostate cancer stage IV
     Dosage: 250 MILLIGRAM, 250 MILLIGRAM, OVER 2 DAYS IN ORDER TO ACHIEVE A TOTAL
     Route: 048
     Dates: start: 2019
  2. ABIRATERONE [Suspect]
     Active Substance: ABIRATERONE
     Dosage: 10 MILLIGRAM
     Route: 048
     Dates: start: 2019
  3. ENZALUTAMIDE [Suspect]
     Active Substance: ENZALUTAMIDE
     Indication: Prostate cancer stage IV
     Dosage: UNK
     Route: 065
  4. PREDNISONE [Concomitant]
     Active Substance: PREDNISONE
     Indication: Premedication
     Dosage: 10 MILLIGRAM, DAILY, 5 MILLIGRAM, BID
  5. EBASTINE [Concomitant]
     Active Substance: EBASTINE
     Indication: Premedication
     Dosage: 20 MILLIGRAM, DAILY

REACTIONS (2)
  - Drug eruption [Unknown]
  - Hypersensitivity [Recovering/Resolving]
